FAERS Safety Report 22130508 (Version 1)
Quarter: 2023Q1

REPORT INFORMATION
  Report Type: Spontaneous
  Country: US (occurrence: US)
  Receive Date: 20230323
  Receipt Date: 20230323
  Transmission Date: 20230418
  Serious: No
  Sender: FDA-Public Use
  Company Number: US-BAYER-2023A032980

PATIENT
  Age: 10 Year
  Sex: Female

DRUGS (1)
  1. CHILDREN CLARITIN ALLERGY [Suspect]
     Active Substance: LORATADINE
     Dosage: 10 ML, OM
     Route: 048
     Dates: start: 20230308, end: 20230309

REACTIONS (1)
  - Incorrect dose administered [Unknown]
